FAERS Safety Report 7770403-6 (Version None)
Quarter: 2011Q3

REPORT INFORMATION
  Report Type: 
  Country: None (occurrence: None)
  Receive Date: 20110922
  Receipt Date: 20110407
  Transmission Date: 20111222
  Serious: No
  Sender: FDA-Public Use
  Company Number: US-ASTRAZENECA-2011SE19842

PATIENT
  Age: 51 Year
  Sex: Female
  Weight: 77.1 kg

DRUGS (4)
  1. WELLBUTRIN SR [Concomitant]
  2. SEROQUEL XR [Suspect]
     Indication: BIPOLAR DISORDER
     Route: 048
     Dates: end: 20110401
  3. SEROQUEL XR [Suspect]
     Route: 048
     Dates: end: 20110401
  4. LITHIUM CARBONATE [Concomitant]
     Dosage: 600 MG DAILY DOSE, FREQUENCY-TWO TIMES A DAY

REACTIONS (8)
  - DISORIENTATION [None]
  - FATIGUE [None]
  - WEIGHT INCREASED [None]
  - HANGOVER [None]
  - TREATMENT NONCOMPLIANCE [None]
  - DIZZINESS [None]
  - FEELING ABNORMAL [None]
  - SEDATION [None]
